FAERS Safety Report 10714112 (Version 2)
Quarter: 2015Q1

REPORT INFORMATION
  Report Type: Spontaneous
  Country: JP (occurrence: JP)
  Receive Date: 20150115
  Receipt Date: 20150127
  Transmission Date: 20150721
  Serious: Yes (Other)
  Sender: FDA-Public Use
  Company Number: PHHY2015JP001988

PATIENT
  Age: 66 Year
  Sex: Male

DRUGS (1)
  1. STARSIS [Suspect]
     Active Substance: NATEGLINIDE
     Indication: GLYCOSURIA
     Dosage: UNK
     Route: 048

REACTIONS (1)
  - Myocardial infarction [Recovered/Resolved]
